FAERS Safety Report 21169120 (Version 2)
Quarter: 2023Q1

REPORT INFORMATION
  Report Type: Spontaneous
  Country: JP (occurrence: JP)
  Receive Date: 20220803
  Receipt Date: 20230223
  Transmission Date: 20230418
  Serious: Yes (Other)
  Sender: FDA-Public Use
  Company Number: JP-SUN PHARMACEUTICAL INDUSTRIES LTD-2022RR-333013

PATIENT
  Age: 88 Year
  Sex: Female

DRUGS (9)
  1. LENALIDOMIDE [Suspect]
     Active Substance: LENALIDOMIDE
     Indication: Plasma cell myeloma
     Dosage: UNK
     Route: 065
  2. BORTEZOMIB [Suspect]
     Active Substance: BORTEZOMIB
     Indication: Plasma cell myeloma
     Dosage: 13 MILLIGRAM/SQ. METER,  DAY 1, 4, 8, 11, EVERY 3 WEEKS
     Route: 058
     Dates: start: 201806
  3. BORTEZOMIB [Suspect]
     Active Substance: BORTEZOMIB
     Dosage: 13 MILLIGRAM/SQ. METER,  DAY 1, 4, 8, 11, EVERY 3 WEEKS
     Route: 058
     Dates: start: 201806
  4. DEXAMETHASONE [Suspect]
     Active Substance: DEXAMETHASONE
     Indication: Plasma cell myeloma
     Dosage: UNK, EVERY 3 WEEKS
     Route: 065
  5. DEXAMETHASONE [Suspect]
     Active Substance: DEXAMETHASONE
     Dosage: UNK, EVERY 4 WEEKS
     Route: 065
  6. DARATUMUMAB [Suspect]
     Active Substance: DARATUMUMAB
     Indication: Plasma cell myeloma
     Dosage: 16 MILLIGRAM/KILOGRAM, DAY 1, 8, 15, EVERY 3 WEEKS
     Route: 041
     Dates: start: 201806
  7. DARATUMUMAB [Suspect]
     Active Substance: DARATUMUMAB
     Dosage: 16 MILLIGRAM/KILOGRAM, DAY 1,EVERY 3 WEEKS
     Route: 042
     Dates: start: 201806
  8. DARATUMUMAB [Suspect]
     Active Substance: DARATUMUMAB
     Dosage: 16 MILLIGRAM/KILOGRAM, DAY 1,EVERY 4 WEEKS
     Route: 042
     Dates: start: 201806
  9. POMALIDOMIDE [Suspect]
     Active Substance: POMALIDOMIDE
     Indication: Plasma cell myeloma
     Dosage: UNK
     Route: 065

REACTIONS (5)
  - Meningitis listeria [Recovered/Resolved]
  - Drug eruption [Unknown]
  - Drug intolerance [Unknown]
  - Myelosuppression [Unknown]
  - Sepsis [Recovering/Resolving]
